FAERS Safety Report 6925366-X (Version None)
Quarter: 2010Q3

REPORT INFORMATION
  Report Type: 
  Country: None (occurrence: None)
  Receive Date: 20100816
  Receipt Date: 20100804
  Transmission Date: 20110219
  Serious: Yes (Other)
  Sender: FDA-Public Use
  Company Number: CZ-PFIZER INC-2010097839

PATIENT
  Age: 32 Year
  Sex: Female

DRUGS (8)
  1. DOXORUBICIN HCL [Suspect]
     Indication: HODGKIN'S DISEASE
     Dosage: 35 MG/M2, DAY 1
  2. CYCLOPHOSPHAMIDE [Suspect]
     Indication: HODGKIN'S DISEASE
     Dosage: 1250 MG/M2, DAY 1
  3. VINCRISTINE SULFATE [Suspect]
     Indication: HODGKIN'S DISEASE
     Dosage: 1.4 - 2 MG/M2, DAY 8
  4. ETOPOSIDE [Suspect]
     Indication: HODGKIN'S DISEASE
     Dosage: 200 MG/M2, DAY 1-3
  5. BLEOMYCIN SULFATE [Suspect]
     Indication: HODGKIN'S DISEASE
     Dosage: 10 MG/M2, DAY 8
  6. PREDNISONE [Suspect]
     Indication: HODGKIN'S DISEASE
     Dosage: 40 MG/M2, DAY 1-14
  7. PROCARBAZINE [Suspect]
     Indication: HODGKIN'S DISEASE
     Dosage: 100 MG/M2, DAY 1-7
  8. PEGFILGRASTIM [Concomitant]
     Indication: PROPHYLAXIS
     Dosage: 6 MG, ALWAYS ON DAY4 OF CYCLE
     Route: 058

REACTIONS (2)
  - CLOSTRIDIUM COLITIS [None]
  - NEUTROPENIA [None]
